FAERS Safety Report 19807653 (Version 1)
Quarter: 2021Q3

REPORT INFORMATION
  Report Type: Spontaneous
  Country: US (occurrence: US)
  Receive Date: 20210909
  Receipt Date: 20210909
  Transmission Date: 20211014
  Serious: No
  Sender: FDA-Public Use
  Company Number: US-REGENERON PHARMACEUTICALS, INC.-2020-97945

PATIENT

DRUGS (15)
  1. FLUTICASONE PROPIONATE HFA 110 MCG/ACT INHALATION AEROSOL [Concomitant]
     Indication: PRODUCT USED FOR UNKNOWN INDICATION
     Dosage: TAKE 2 PUFFS BY INHALATION
     Route: 055
     Dates: start: 20181115
  2. MAGNESIUM [Concomitant]
     Active Substance: MAGNESIUM
     Indication: PRODUCT USED FOR UNKNOWN INDICATION
     Dosage: 250 MG, TAKE BY MOUTH DAILY.TAKE 1 TAB EVERY OTHER DAY
     Route: 048
  3. DIPHENHYDRAMINE. [Concomitant]
     Active Substance: DIPHENHYDRAMINE
     Indication: PRODUCT USED FOR UNKNOWN INDICATION
     Dosage: 25 MG,  TAKE 1 TAB BY MOUTH AS NEEDED
     Route: 048
  4. ESTRADIOL. [Concomitant]
     Active Substance: ESTRADIOL
     Indication: PRODUCT USED FOR UNKNOWN INDICATION
     Dosage: 10 ?G, INSERT 10 MCG VAGINALLY 2 TIMES PER WEEK
     Route: 067
     Dates: start: 20201021
  5. ALBUTEROL HFA 108 (90 BASE) MCG/ACT INHALATION AEROSOL SOLUTION [Concomitant]
     Indication: DYSPNOEA
     Dosage: TAKE 1?2 PUFFS BYINHALATION EVERY 4 TO 6 HOURS AS NEEDED FOR WH EEZING OR SHORTNESS OF BREATH
     Route: 055
     Dates: start: 20201021
  6. FLUOROURACIL. [Concomitant]
     Active Substance: FLUOROURACIL
     Indication: PRODUCT USED FOR UNKNOWN INDICATION
     Dosage: APLY BID TO FACE FOR TWO WEEKS TO PRE CANCER CELLS AVOID SUN
     Dates: start: 20190129
  7. SHINGRIX [Concomitant]
     Active Substance: RECOMBINANT VARICELLA ZOSTER VIRUS (VZV) GLYCOPROTEIN E
     Indication: PRODUCT USED FOR UNKNOWN INDICATION
     Dosage: 50 MCG/0.5 ML
     Dates: start: 20201120
  8. ALPRAZOLAM. [Concomitant]
     Active Substance: ALPRAZOLAM
     Indication: PRODUCT USED FOR UNKNOWN INDICATION
     Dosage: 0.25 MG,TAKE 1 TABLET BY MOUTH AT BEDTIME
     Route: 048
     Dates: start: 20210311
  9. NAPROXEN SODIUM. [Concomitant]
     Active Substance: NAPROXEN SODIUM
     Indication: PRODUCT USED FOR UNKNOWN INDICATION
     Dosage: 220 MG, TAKE BY MOUTH
     Route: 048
     Dates: start: 20111202
  10. CLINDAMYCIN. [Concomitant]
     Active Substance: CLINDAMYCIN
     Indication: PRODUCT USED FOR UNKNOWN INDICATION
     Dosage: SPREAD 1 APPLICATION ON AFFECTED AREA 2 TIMES DAILY
     Route: 061
     Dates: start: 20201021
  11. MOMETASON [Concomitant]
     Active Substance: MOMETASONE FUROATE
     Indication: PRODUCT USED FOR UNKNOWN INDICATION
     Dosage: 50 ?G, INHALE 1 SPRAY NASALLY
     Route: 045
     Dates: start: 20181101
  12. PRALUENT [Suspect]
     Active Substance: ALIROCUMAB
     Dosage: 75 MG MONTHLY
     Route: 058
     Dates: start: 20210215
  13. EPINEPHRINE. [Concomitant]
     Active Substance: EPINEPHRINE
     Indication: PRODUCT USED FOR UNKNOWN INDICATION
     Dosage: 0.3 MG/0.3ML, USE AS DISCUSSED FOR FOOD ALLERGIC REACTION
     Dates: start: 20180111
  14. PRALUENT [Suspect]
     Active Substance: ALIROCUMAB
     Indication: HYPERCHOLESTEROLAEMIA
     Dosage: 75 MG, Q2W
     Route: 058
     Dates: start: 20201123
  15. ALBUTEROL HFA 108 (90 BASE) MCG/ACT INHALATION AEROSOL SOLUTION [Concomitant]
     Indication: WHEEZING

REACTIONS (9)
  - Abdominal discomfort [Unknown]
  - Arthralgia [Not Recovered/Not Resolved]
  - Fatigue [Recovered/Resolved]
  - Paraesthesia [Not Recovered/Not Resolved]
  - Insomnia [Unknown]
  - Back pain [Unknown]
  - Headache [Unknown]
  - Neck pain [Recovering/Resolving]
  - Inappropriate schedule of product administration [Unknown]

NARRATIVE: CASE EVENT DATE: 202012
